FAERS Safety Report 17565898 (Version 2)
Quarter: 2020Q1

REPORT INFORMATION
  Report Type: Spontaneous
  Country: FR (occurrence: FR)
  Receive Date: 20200320
  Receipt Date: 20200331
  Transmission Date: 20200409
  Serious: Yes (Hospitalization)
  Sender: FDA-Public Use
  Company Number: FR-CELGENEUS-FRA-20200306277

PATIENT
  Age: 11 Year
  Sex: Male
  Weight: 19 kg

DRUGS (31)
  1. AZACITIDINE. [Suspect]
     Active Substance: AZACITIDINE
     Indication: NEOPLASM MALIGNANT
     Dosage: 75 MILLIGRAM/SQ. METER
     Route: 058
     Dates: start: 20200102, end: 20200227
  2. LINEZOLIDE [Concomitant]
     Active Substance: LINEZOLID
     Indication: INFECTION
     Dosage: 570 MILLIGRAM
     Route: 041
     Dates: start: 20200107, end: 20200109
  3. ONDANSETRON [Concomitant]
     Active Substance: ONDANSETRON
     Indication: NAUSEA
     Dosage: 8 MILLIGRAM
     Route: 048
     Dates: start: 20200224
  4. MYCAMINE [Concomitant]
     Active Substance: MICAFUNGIN SODIUM
     Indication: FEBRILE NEUTROPENIA
     Dosage: 35 MILLIGRAM
     Route: 041
     Dates: start: 20200227, end: 20200306
  5. ONDANSETRON [Concomitant]
     Active Substance: ONDANSETRON
     Indication: PROPHYLAXIS OF NAUSEA AND VOMITING
     Dosage: 4 MILLIGRAM
     Route: 041
     Dates: start: 20191230
  6. CEFEPIME [Concomitant]
     Active Substance: CEFEPIME HYDROCHLORIDE
     Indication: FEBRILE NEUTROPENIA
     Dosage: 2.85 MILLIGRAM
     Route: 041
     Dates: start: 20200217, end: 20200221
  7. VENETOCLAX. [Concomitant]
     Active Substance: VENETOCLAX
     Dosage: 60 MILLIGRAM
     Route: 048
     Dates: start: 20191231, end: 20191231
  8. LINEZOLIDE [Concomitant]
     Active Substance: LINEZOLID
     Dosage: 600 MILLIGRAM
     Route: 041
     Dates: start: 20200227, end: 20200307
  9. MICAFUNGINE [Concomitant]
     Active Substance: MICAFUNGIN
     Indication: NEUTROPENIA
     Dosage: 120 MILLIGRAM
     Route: 041
     Dates: start: 20200127
  10. POLARAMINE [Concomitant]
     Active Substance: DEXCHLORPHENIRAMINE MALEATE
     Indication: ANTIALLERGIC THERAPY
     Dosage: 2.5 MILLIGRAM
     Route: 041
     Dates: start: 20200103
  11. VENETOCLAX. [Concomitant]
     Active Substance: VENETOCLAX
     Dosage: 120 MILLIGRAM
     Route: 048
     Dates: start: 20200101, end: 20200112
  12. ACIDE TRANEXAMIQUE [Concomitant]
     Indication: TOOTH LOSS
     Dosage: 4 MILLIGRAM
     Route: 061
     Dates: start: 20190113
  13. LINEZOLIDE [Concomitant]
     Active Substance: LINEZOLID
     Dosage: 600 MILLIGRAM
     Route: 048
     Dates: start: 20200109, end: 20200115
  14. CHLOREXIDIN [Concomitant]
     Indication: DENTAL DISORDER PROPHYLAXIS
     Dosage: 300 MILLILITER
     Route: 061
     Dates: start: 20191230
  15. BACTRIM [Concomitant]
     Active Substance: SULFAMETHOXAZOLE\TRIMETHOPRIM
     Indication: INFECTION PROPHYLAXIS
     Dosage: 500 MILLIGRAM
     Route: 041
     Dates: start: 20191230
  16. LEVOCETIRIZINE [Concomitant]
     Active Substance: LEVOCETIRIZINE
     Indication: ANTIALLERGIC THERAPY
     Route: 048
     Dates: start: 20191230
  17. FASTURTEC [Concomitant]
     Active Substance: RASBURICASE
     Indication: TUMOUR LYSIS SYNDROME
     Dosage: 3 MILLIGRAM
     Route: 041
     Dates: start: 20191230
  18. HYDROCORTISONE. [Concomitant]
     Active Substance: HYDROCORTISONE
     Indication: PROPHYLAXIS
     Dosage: 50 MILLIGRAM
     Route: 041
     Dates: start: 20200103
  19. AMYCAMINE [Concomitant]
     Indication: ANTIFUNGAL PROPHYLAXIS
     Dosage: 40 MILLIGRAM
     Route: 041
     Dates: start: 20200127
  20. CEFEPIME [Concomitant]
     Active Substance: CEFEPIME HYDROCHLORIDE
     Indication: FEBRILE NEUTROPENIA
     Dosage: 2700 MILLIGRAM
     Route: 041
     Dates: start: 20200117, end: 20200120
  21. ZINC. [Concomitant]
     Active Substance: ZINC
     Indication: DENTAL DISORDER PROPHYLAXIS
     Dosage: 300 MILLILITER
     Route: 061
     Dates: start: 20191230
  22. ONDANSETRON [Concomitant]
     Active Substance: ONDANSETRON
     Indication: VOMITING
  23. POLARAMINE [Concomitant]
     Active Substance: DEXCHLORPHENIRAMINE MALEATE
     Dosage: 2.5 MILLIGRAM
     Route: 041
     Dates: start: 20200228, end: 20200305
  24. CEFEPIME [Concomitant]
     Active Substance: CEFEPIME HYDROCHLORIDE
     Dosage: 9 MILLIGRAM
     Route: 041
     Dates: start: 20200227, end: 20200306
  25. VENETOCLAX. [Concomitant]
     Active Substance: VENETOCLAX
     Dosage: 120 MILLIGRAM
     Route: 065
     Dates: start: 20200113, end: 20200227
  26. SODIUM BICARBONATE. [Concomitant]
     Active Substance: SODIUM BICARBONATE
     Indication: DENTAL DISORDER PROPHYLAXIS
     Dosage: 300 MILLILITER
     Route: 061
     Dates: start: 20191230
  27. LEVOCETIRIZINE [Concomitant]
     Active Substance: LEVOCETIRIZINE
     Indication: PROPHYLAXIS
  28. VENETOCLAX. [Concomitant]
     Active Substance: VENETOCLAX
     Indication: NEOPLASM MALIGNANT
     Dosage: 30 MILLIGRAM
     Route: 048
     Dates: start: 20191230, end: 20191230
  29. HYDROXYCARBAMIDE [Concomitant]
     Active Substance: HYDROXYUREA
     Indication: BONE MARROW DISORDER
     Dosage: 1000 MILLIGRAM
     Route: 048
     Dates: start: 20191223
  30. OSELTAMIVIR [Concomitant]
     Active Substance: OSELTAMIVIR
     Indication: INFLUENZA
     Dosage: 60 MILLIGRAM
     Route: 048
     Dates: start: 20200221
  31. PANTOPRAZOLE [Concomitant]
     Active Substance: PANTOPRAZOLE
     Indication: PROPHYLAXIS
     Dosage: 20 MILLIGRAM
     Route: 048
     Dates: start: 20200227, end: 20200306

REACTIONS (1)
  - Influenza [Not Recovered/Not Resolved]

NARRATIVE: CASE EVENT DATE: 20200302
